FAERS Safety Report 11907202 (Version 2)
Quarter: 2016Q1

REPORT INFORMATION
  Report Type: Report from Study
  Country: KR (occurrence: KR)
  Receive Date: 20160111
  Receipt Date: 20160301
  Transmission Date: 20160526
  Serious: Yes (Other)
  Sender: FDA-Public Use
  Company Number: KR-ELI_LILLY_AND_COMPANY-KR201510000717

PATIENT
  Sex: Female

DRUGS (2)
  1. FORSTEO [Suspect]
     Active Substance: TERIPARATIDE
     Indication: OSTEOPOROSIS
     Dosage: 20 UG, QD
     Route: 058
     Dates: end: 2015
  2. FORSTEO [Suspect]
     Active Substance: TERIPARATIDE
     Dosage: UNK, UNKNOWN
     Route: 065
     Dates: start: 201512

REACTIONS (4)
  - Nausea [Not Recovered/Not Resolved]
  - Alopecia [Not Recovered/Not Resolved]
  - Decreased appetite [Not Recovered/Not Resolved]
  - Malnutrition [Not Recovered/Not Resolved]
